FAERS Safety Report 8505586-3 (Version None)
Quarter: 2012Q3

REPORT INFORMATION
  Report Type: 
  Country: None (occurrence: None)
  Receive Date: 20120712
  Receipt Date: 20120628
  Transmission Date: 20120928
  Serious: Yes (Hospitalization, Other)
  Sender: FDA-Public Use
  Company Number: JP-AMGEN-JPNSP2012036657

PATIENT
  Age: 60 Year
  Sex: Female
  Weight: 56.961 kg

DRUGS (12)
  1. METHOTREXATE SODIUM [Suspect]
     Indication: RHEUMATOID ARTHRITIS
     Dosage: 10.5 MG, WEEKLY
     Route: 048
     Dates: end: 20120529
  2. LEVOTHYROXINE SODIUM [Concomitant]
     Indication: THYROIDITIS CHRONIC
     Dosage: 50 MG AND 75 MG ALTERNATELY
     Route: 048
  3. ASPARA-CA [Concomitant]
     Indication: OSTEOPOROSIS
     Dosage: 200 MG, 2X/DAY
     Route: 048
  4. ENBREL [Suspect]
     Dosage: 25 MG, 2X/WEEK
     Route: 058
     Dates: start: 20080731, end: 20120605
  5. FOLIAMIN [Concomitant]
     Indication: PROPHYLAXIS
     Dosage: 2.5 MG, WEEKLY
     Route: 048
     Dates: end: 20120531
  6. MAGNESIUM OXIDE [Concomitant]
     Indication: CONSTIPATION
     Dosage: 0.5 G, 3X/DAY
     Route: 048
  7. ALENDRONATE SODIUM [Concomitant]
     Indication: OSTEOPOROSIS
     Dosage: 35 MG, WEEKLY
     Route: 048
  8. ALFAROL [Concomitant]
     Indication: OSTEOPOROSIS
     Dosage: 1 UG, 1X/DAY
     Route: 048
  9. VOLTAREN COLIRIO UNIDOSES [Concomitant]
     Indication: RHEUMATOID ARTHRITIS
     Dosage: 75 MG, 1X/DAY
     Route: 048
     Dates: end: 20090114
  10. MUCOSTA [Concomitant]
     Indication: GASTRITIS
     Dosage: 100 MG, 2X/DAY
     Route: 048
  11. THIOLA [Concomitant]
     Indication: RHEUMATOID ARTHRITIS
     Dosage: 200 MG, 3X/DAY
     Route: 048
     Dates: end: 20090114
  12. PREDNISOLONE [Concomitant]
     Indication: RHEUMATOID ARTHRITIS
     Dosage: 7 MG/DAY
     Route: 048

REACTIONS (5)
  - HEADACHE [None]
  - INTERSTITIAL LUNG DISEASE [None]
  - PNEUMONIA VIRAL [None]
  - UPPER RESPIRATORY TRACT INFLAMMATION [None]
  - PNEUMOCYSTIS JIROVECI PNEUMONIA [None]
